FAERS Safety Report 21262968 (Version 2)
Quarter: 2023Q1

REPORT INFORMATION
  Report Type: Other
  Country: CN (occurrence: None)
  Receive Date: 20220828
  Receipt Date: 20230209
  Transmission Date: 20230418
  Serious: No
  Sender: FDA-Public Use
  Company Number: CN-ROCHE-3166933

PATIENT
  Age: 51 Year
  Sex: Male

DRUGS (9)
  1. BEVACIZUMAB [Suspect]
     Active Substance: BEVACIZUMAB
     Indication: Pleural mesothelioma malignant
     Dosage: SECOND-LINE TREATMENT
     Route: 065
     Dates: start: 201901, end: 201904
  2. CAPECITABINE [Suspect]
     Active Substance: CAPECITABINE
     Indication: Pleural mesothelioma malignant
     Route: 065
     Dates: start: 2019
  3. CARBOPLATIN [Suspect]
     Active Substance: CARBOPLATIN
     Indication: Pleural mesothelioma malignant
     Dosage: ONE CYCLE
     Route: 065
     Dates: start: 201812
  4. PEMETREXED [Suspect]
     Active Substance: PEMETREXED
     Indication: Pleural mesothelioma malignant
     Dosage: ONE CYCLE
     Route: 065
     Dates: start: 201812
  5. PEMBROLIZUMAB [Suspect]
     Active Substance: PEMBROLIZUMAB
     Indication: Pleural mesothelioma malignant
     Dosage: SECOND-LINE TREATMENT
     Route: 065
     Dates: start: 201901, end: 201904
  6. TAXOL [Suspect]
     Active Substance: PACLITAXEL
     Indication: Pleural mesothelioma malignant
     Route: 065
     Dates: start: 201901, end: 201904
  7. CATEQUENTINIB [Suspect]
     Active Substance: CATEQUENTINIB
     Indication: Pleural mesothelioma malignant
     Dosage: THIRD-LINE THERAPY
     Route: 065
     Dates: start: 201907
  8. METHYLPREDNISOLONE [Concomitant]
     Active Substance: METHYLPREDNISOLONE
     Indication: Immune-mediated lung disease
  9. TEMOZOLOMIDE [Concomitant]
     Active Substance: TEMOZOLOMIDE
     Indication: Pleural mesothelioma malignant
     Dosage: ONE CYCLE
     Dates: start: 2019

REACTIONS (3)
  - Disease progression [Unknown]
  - Metastases to liver [Unknown]
  - Off label use [Unknown]

NARRATIVE: CASE EVENT DATE: 20190701
